FAERS Safety Report 14179114 (Version 1)
Quarter: 2017Q4

REPORT INFORMATION
  Report Type: Report from Study
  Country: US (occurrence: US)
  Receive Date: 20171110
  Receipt Date: 20171110
  Transmission Date: 20180321
  Serious: No
  Sender: FDA-Public Use
  Company Number: US-AMNEAL PHARMACEUTICALS-2017AMN00784

PATIENT
  Age: 3 Year
  Sex: Female

DRUGS (1)
  1. OXCARBAZEPINE. [Suspect]
     Active Substance: OXCARBAZEPINE
     Indication: FOCAL DYSCOGNITIVE SEIZURES
     Dosage: UNK
     Dates: start: 201612

REACTIONS (3)
  - Seizure [Not Recovered/Not Resolved]
  - Product physical issue [Not Recovered/Not Resolved]
  - Product dropper issue [Not Recovered/Not Resolved]
